FAERS Safety Report 15707868 (Version 5)
Quarter: 2019Q3

REPORT INFORMATION
  Report Type: Report from Study
  Country: DE (occurrence: DE)
  Receive Date: 20181211
  Receipt Date: 20190827
  Transmission Date: 20191004
  Serious: Yes (Hospitalization, Other)
  Sender: FDA-Public Use
  Company Number: DE-ROCHE-2173418

PATIENT
  Age: 43 Year
  Sex: Male

DRUGS (6)
  1. CORTISON [Suspect]
     Active Substance: CORTISONE ACETATE
     Route: 042
  2. TIZANIDINE. [Suspect]
     Active Substance: TIZANIDINE
     Indication: PRODUCT USED FOR UNKNOWN INDICATION
     Route: 065
  3. OCREVUS [Suspect]
     Active Substance: OCRELIZUMAB
     Indication: RELAPSING-REMITTING MULTIPLE SCLEROSIS
     Dosage: SECOND INFUSION ON 23/AUG/2018
     Route: 042
     Dates: start: 20180809
  4. CORTISON [Suspect]
     Active Substance: CORTISONE ACETATE
     Indication: MULTIPLE SCLEROSIS RELAPSE
     Route: 042
     Dates: start: 20180815, end: 20180817
  5. FAMPYRA [Concomitant]
     Active Substance: DALFAMPRIDINE
     Route: 065
  6. TAMSULOSIN [Concomitant]
     Active Substance: TAMSULOSIN
     Route: 065

REACTIONS (18)
  - Asthenia [Recovered/Resolved]
  - Erythema [Recovering/Resolving]
  - Neuritis [Unknown]
  - Dizziness [Recovered/Resolved]
  - Lymphadenopathy [Recovered/Resolved]
  - Infusion site pain [Recovered/Resolved]
  - Impaired healing [Recovered/Resolved]
  - Infusion related reaction [Unknown]
  - Anxiety [Recovered/Resolved]
  - Fungal infection [Unknown]
  - Pain in extremity [Recovered/Resolved]
  - Energy increased [Unknown]
  - Myosclerosis [Not Recovered/Not Resolved]
  - Somnolence [Unknown]
  - Fatigue [Not Recovered/Not Resolved]
  - Nail bed inflammation [Not Recovered/Not Resolved]
  - Multiple sclerosis relapse [Recovered/Resolved]
  - Skin disorder [Not Recovered/Not Resolved]

NARRATIVE: CASE EVENT DATE: 20180810
